FAERS Safety Report 4356820-5 (Version None)
Quarter: 2004Q2

REPORT INFORMATION
  Report Type: 
  Country: None (occurrence: None)
  Receive Date: 20040507
  Receipt Date: 20040427
  Transmission Date: 20050107
  Serious: Yes (Death, Hospitalization, Other)
  Sender: FDA-Public Use
  Company Number: 2004-04-1738

PATIENT
  Age: 63 Year
  Sex: Male

DRUGS (1)
  1. INTERFERON ALFA INJECTABLE [Suspect]
     Indication: MYCOSIS FUNGOIDES
     Dosage: 5 MIU TIW SUBCUTANEOUS
     Route: 058

REACTIONS (6)
  - DERMATITIS EXFOLIATIVE [None]
  - HAEMATURIA [None]
  - HYPERGAMMAGLOBULINAEMIA [None]
  - HYPERTENSION [None]
  - SEPSIS [None]
  - THROMBOTIC MICROANGIOPATHY [None]
